FAERS Safety Report 5029733-3 (Version None)
Quarter: 2006Q2

REPORT INFORMATION
  Report Type: 
  Country: None (occurrence: None)
  Receive Date: 20060614
  Receipt Date: 20060530
  Transmission Date: 20061013
  Serious: No
  Sender: FDA-Public Use
  Company Number: TPA2006A00903

PATIENT
  Age: 52 Year
  Sex: Female
  Weight: 64.4108 kg

DRUGS (3)
  1. ROZEREM [Suspect]
     Indication: SLEEP DISORDER
     Dosage: 8 MG PER ORAL
     Route: 048
     Dates: start: 20060505
  2. MULTIVITAMIN [Concomitant]
  3. CALCIUM GLUCONATE [Concomitant]

REACTIONS (17)
  - ABNORMAL DREAMS [None]
  - DIARRHOEA [None]
  - DIZZINESS [None]
  - DRUG EFFECT INCREASED [None]
  - FEELING ABNORMAL [None]
  - FEELING COLD [None]
  - FEELING HOT [None]
  - FLUID INTAKE REDUCED [None]
  - HEADACHE [None]
  - HEART RATE INCREASED [None]
  - HUNGER [None]
  - NAUSEA [None]
  - ORAL INTAKE REDUCED [None]
  - PERIPHERAL COLDNESS [None]
  - PHOBIA OF DRIVING [None]
  - SLEEP DISORDER [None]
  - THIRST [None]
